FAERS Safety Report 14766676 (Version 1)
Quarter: 2018Q2

REPORT INFORMATION
  Report Type: Spontaneous
  Country: JP (occurrence: JP)
  Receive Date: 20180417
  Receipt Date: 20180417
  Transmission Date: 20180711
  Serious: Yes (Hospitalization)
  Sender: FDA-Public Use
  Company Number: JP-INGENUS PHARMACEUTICALS, LLC-INF201804-000291

PATIENT
  Age: 69 Year
  Sex: Male

DRUGS (5)
  1. DOCETAXEL. [Suspect]
     Active Substance: DOCETAXEL
     Indication: NON-SMALL CELL LUNG CANCER
  2. PIPERACILLIN [Concomitant]
     Active Substance: PIPERACILLIN
  3. FILGRASTIM [Concomitant]
     Active Substance: FILGRASTIM
  4. RAMUCIRUMAB [Suspect]
     Active Substance: RAMUCIRUMAB
     Indication: NON-SMALL CELL LUNG CANCER
  5. TAZOBACTAM [Concomitant]
     Active Substance: TAZOBACTAM

REACTIONS (4)
  - Paronychia [Unknown]
  - Abscess [Recovered/Resolved]
  - Onycholysis [Unknown]
  - Febrile neutropenia [Unknown]
